FAERS Safety Report 4839129-2 (Version None)
Quarter: 2005Q4

REPORT INFORMATION
  Report Type: 
  Country: None (occurrence: None)
  Receive Date: 20051128
  Receipt Date: 20051128
  Transmission Date: 20060501
  Serious: Yes (Death, Hospitalization)
  Sender: FDA-Public Use
  Company Number: None

PATIENT
  Sex: Male
  Weight: 116.3 kg

DRUGS (9)
  1. ALLOPURINOL [Suspect]
     Indication: MULTIPLE MYELOMA
     Dosage: SEE IMAGE
     Dates: start: 20051024, end: 20051031
  2. ALLOPURINOL [Suspect]
     Indication: MULTIPLE MYELOMA
     Dosage: SEE IMAGE
     Dates: start: 20051025
  3. ANTITHYMOCYTE GLOBULIN THYMOGLOBULIN (ATG RABBIT) [Suspect]
     Dosage: SEE IMAGE
     Dates: start: 20051028, end: 20051031
  4. BUSULFAN [Suspect]
     Dosage: SEE IMAGE
  5. FLUDARABINE PHOSPHATE [Suspect]
     Dosage: SEE IMAGE
     Dates: start: 20051025, end: 20051029
  6. G-CSF (FILGRASTIM, AMGEN) [Suspect]
     Dosage: SEE IMAGE
     Dates: start: 20051109, end: 20051118
  7. METHOTREXATE [Suspect]
     Dosage: SEE IMAGE
     Dates: start: 20051103, end: 20051108
  8. MYCOPHENOLATE (MOFETIL CELLCEPT [Suspect]
     Dosage: SEE IMAGE
  9. TACROLIMUS [Suspect]
     Dosage: SEE IMAGE
     Dates: start: 20051031, end: 20051107

REACTIONS (1)
  - SEPSIS [None]
